FAERS Safety Report 18309360 (Version 6)
Quarter: 2020Q4

REPORT INFORMATION
  Report Type: Spontaneous
  Country: IT (occurrence: IT)
  Receive Date: 20200925
  Receipt Date: 20201214
  Transmission Date: 20210113
  Serious: Yes (Life-Threatening, Hospitalization, Other)
  Sender: FDA-Public Use
  Company Number: IT-AUROBINDO-AUR-APL-2020-049505

PATIENT
  Age: 55 Year
  Sex: Female

DRUGS (16)
  1. AMOXICILLIN+CLAVULANIC ACID [Suspect]
     Active Substance: AMOXICILLIN\CLAVULANIC ACID
     Indication: INFECTION
     Dosage: 1 GRAM, TWO TIMES A DAY
     Route: 048
  2. AMOXICILLIN+CLAVULANIC ACID [Interacting]
     Active Substance: AMOXICILLIN\CLAVULANIC ACID
     Indication: TOOTH INFECTION
  3. ATORVASTATIN [Interacting]
     Active Substance: ATORVASTATIN
     Indication: BLOOD CHOLESTEROL INCREASED
     Dosage: 40 MILLIGRAM, ONCE A DAY
     Route: 065
     Dates: start: 2015
  4. AMIODARONE [Suspect]
     Active Substance: AMIODARONE
     Dosage: 900 MILLIGRAM, ONCE A DAY (MG PER 24 H WAS IMMEDIATELY PERFOMED)
     Route: 042
  5. OMEPRAZOLE. [Concomitant]
     Active Substance: OMEPRAZOLE
     Indication: PRODUCT USED FOR UNKNOWN INDICATION
     Dosage: 40 MILLIGRAM, ONCE A DAY
     Route: 065
     Dates: start: 2015
  6. URSODEOXYCHOLIC ACID [Concomitant]
     Active Substance: URSODIOL
     Indication: PRODUCT USED FOR UNKNOWN INDICATION
     Dosage: 450 MILLIGRAM, ONCE A DAY
     Route: 065
     Dates: start: 2015
  7. FUROSEMIDE. [Concomitant]
     Active Substance: FUROSEMIDE
     Indication: HAEMODYNAMIC INSTABILITY
     Dosage: 125 MILLIGRAM, ONCE A DAY
     Route: 048
  8. RAMIPRIL. [Concomitant]
     Active Substance: RAMIPRIL
     Indication: ACUTE MYOCARDIAL INFARCTION
     Dosage: 2.5 MILLIGRAM, ONCE A DAY
     Route: 065
     Dates: start: 2015
  9. CANRENONE [Concomitant]
     Active Substance: CANRENONE
     Indication: DIURETIC THERAPY
     Dosage: 200 MILLIGRAM, EVERY OTHER DAY
     Route: 065
  10. AMIODARONE [Suspect]
     Active Substance: AMIODARONE
     Indication: CARDIOVERSION
     Dosage: 350 MILLIGRAM (UNKNOWN FREQ. (PER 60 MIN)
     Route: 042
  11. FUROSEMIDE. [Concomitant]
     Active Substance: FUROSEMIDE
     Indication: DIURETIC THERAPY
     Dosage: 25 MILLIGRAM, EVERY OTHER DAY
     Route: 065
     Dates: start: 2015
  12. BISOPROLOL [Concomitant]
     Active Substance: BISOPROLOL
     Indication: ACUTE MYOCARDIAL INFARCTION
     Dosage: 10 MILLIGRAM, DAILY
     Route: 065
     Dates: start: 2015
  13. LEVOTHYROXINE. [Concomitant]
     Active Substance: LEVOTHYROXINE
     Indication: HYPOTHYROIDISM
     Dosage: 50 MICROGRAM, ONCE A DAY
     Route: 065
     Dates: start: 2015
  14. FUROSEMIDE. [Concomitant]
     Active Substance: FUROSEMIDE
     Indication: ACUTE MYOCARDIAL INFARCTION
     Dosage: 100 MILLIGRAM (UNKNOWN FREQ)
     Route: 042
  15. METOPROLOL. [Concomitant]
     Active Substance: METOPROLOL
     Indication: PRODUCT USED FOR UNKNOWN INDICATION
     Dosage: 150 MILLIGRAM, ONCE A DAY
     Route: 065
  16. APIXABAN [Concomitant]
     Active Substance: APIXABAN
     Indication: ANTICOAGULANT THERAPY
     Dosage: 10 MILLIGRAM, ONCE A DAY
     Route: 065
     Dates: start: 2015

REACTIONS (9)
  - Pain in extremity [Recovered/Resolved]
  - Fatigue [Recovered/Resolved]
  - Drug interaction [Recovered/Resolved]
  - Muscular weakness [Recovered/Resolved]
  - Drug-induced liver injury [Recovered/Resolved]
  - Liver injury [Recovered/Resolved]
  - Rhabdomyolysis [Recovered/Resolved]
  - Drug level increased [Recovered/Resolved]
  - Asthenia [Recovered/Resolved]
